APPROVED DRUG PRODUCT: MEFLOQUINE HYDROCHLORIDE
Active Ingredient: MEFLOQUINE HYDROCHLORIDE
Strength: 250MG **Federal Register determination that product was not discontinued or withdrawn for safety or effectiveness reasons**
Dosage Form/Route: TABLET;ORAL
Application: N019578 | Product #001
Applicant: UNITED STATES ARMY WALTER REED ARMY INSTITUTE RESEARCH
Approved: May 2, 1989 | RLD: No | RS: No | Type: DISCN